FAERS Safety Report 6700717-X (Version None)
Quarter: 2010Q2

REPORT INFORMATION
  Report Type: 
  Country: None (occurrence: None)
  Receive Date: 20100428
  Receipt Date: 20100421
  Transmission Date: 20101027
  Serious: Yes (Hospitalization)
  Sender: FDA-Public Use
  Company Number: DE-MERCK-1004DEU00063

PATIENT
  Age: 79 Year
  Sex: Female

DRUGS (4)
  1. FOSAMAX [Suspect]
     Indication: OSTEOPOROSIS
     Route: 048
     Dates: start: 20070101
  2. RAMIPRIL [Concomitant]
     Indication: HYPERTENSION
     Route: 048
  3. CALCIUM (UNSPECIFIED) AND CHOLECALCIFEROL [Suspect]
     Indication: OSTEOPOROSIS
     Route: 048
     Dates: start: 20070101, end: 20100305
  4. RIVASTIGMINE [Suspect]
     Indication: DEMENTIA
     Route: 061
     Dates: start: 20090901, end: 20100305

REACTIONS (2)
  - HYPERCALCAEMIA [None]
  - NAUSEA [None]
